FAERS Safety Report 10264856 (Version 1)
Quarter: 2014Q2

REPORT INFORMATION
  Report Type: Spontaneous
  Country: GB (occurrence: GB)
  Receive Date: 20140627
  Receipt Date: 20140627
  Transmission Date: 20141212
  Serious: Yes (Other)
  Sender: FDA-Public Use
  Company Number: GB-JNJFOC-20140614417

PATIENT
  Age: 34 Year
  Sex: Female
  Weight: 69 kg

DRUGS (3)
  1. TOPIRAMATE [Suspect]
     Indication: MIGRAINE
     Route: 048
     Dates: start: 20140106, end: 20140112
  2. OMEPRAZOLE [Concomitant]
     Indication: DYSPEPSIA
     Route: 065
  3. IMIGRAN [Concomitant]
     Indication: MIGRAINE
     Route: 065

REACTIONS (2)
  - Visual impairment [Unknown]
  - Visual field defect [Recovered/Resolved]
